FAERS Safety Report 25268499 (Version 2)
Quarter: 2025Q2

REPORT INFORMATION
  Report Type: Spontaneous
  Country: ES (occurrence: ES)
  Receive Date: 20250505
  Receipt Date: 20250515
  Transmission Date: 20250717
  Serious: Yes (Congenital Anomaly)
  Sender: ACCORD
  Company Number: ES-AEMPS-1646436

PATIENT
  Sex: Female
  Weight: 2.86 kg

DRUGS (6)
  1. LEVETIRACETAM [Suspect]
     Active Substance: LEVETIRACETAM
     Route: 064
     Dates: start: 2018
  2. LAMOTRIGINE [Suspect]
     Active Substance: LAMOTRIGINE
     Route: 064
     Dates: start: 2018
  3. CLOBAZAM [Suspect]
     Active Substance: CLOBAZAM
     Route: 064
     Dates: start: 2018
  4. LEVOTHYROXINE SODIUM [Suspect]
     Active Substance: LEVOTHYROXINE SODIUM
     Route: 064
     Dates: start: 2018
  5. FOLIC ACID [Suspect]
     Active Substance: FOLIC ACID
     Route: 064
     Dates: start: 2018
  6. FOLIC ACID [Suspect]
     Active Substance: FOLIC ACID
     Route: 064
     Dates: start: 2018

REACTIONS (2)
  - Anorectal malformation [Recovered/Resolved with Sequelae]
  - Foetal exposure during pregnancy [Unknown]

NARRATIVE: CASE EVENT DATE: 20180101
